FAERS Safety Report 5232638-6 (Version None)
Quarter: 2007Q1

REPORT INFORMATION
  Report Type: 
  Country: None (occurrence: None)
  Receive Date: 20070207
  Receipt Date: 20070125
  Transmission Date: 20070707
  Serious: Yes (Hospitalization)
  Sender: FDA-Public Use
  Company Number: US-BRISTOL-MYERS SQUIBB COMPANY-13657119

PATIENT
  Age: 53 Year
  Sex: Female
  Weight: 77 kg

DRUGS (2)
  1. COUMADIN [Suspect]
  2. METHOTREXATE [Concomitant]

REACTIONS (5)
  - BRAIN OEDEMA [None]
  - INCOHERENT [None]
  - PARALYSIS [None]
  - PROTHROMBIN TIME RATIO INCREASED [None]
  - VOMITING [None]
